FAERS Safety Report 8138366-1 (Version None)
Quarter: 2012Q1

REPORT INFORMATION
  Report Type: 
  Country: None (occurrence: None)
  Receive Date: 20120215
  Receipt Date: 20120207
  Transmission Date: 20120608
  Serious: Yes (Other)
  Sender: FDA-Public Use
  Company Number: GB-BAYER-2012-013051

PATIENT
  Age: 44 Year
  Sex: Female

DRUGS (2)
  1. CIPROFLOXACIN HYDROCHLORIDE [Suspect]
     Indication: CYSTITIS
     Dosage: FIVE COURSES OVER 12 MONTHS PERIOD
     Dates: start: 20060101
  2. CIPROFLOXACIN HYDROCHLORIDE [Suspect]
     Indication: KIDNEY INFECTION

REACTIONS (9)
  - DIZZINESS [None]
  - BALANCE DISORDER [None]
  - BACK PAIN [None]
  - TORTICOLLIS [None]
  - MUSCLE DISORDER [None]
  - PAIN IN EXTREMITY [None]
  - BURNING SENSATION [None]
  - TINNITUS [None]
  - POLLAKIURIA [None]
